FAERS Safety Report 5137764-8 (Version None)
Quarter: 2006Q4

REPORT INFORMATION
  Report Type: 
  Country: None (occurrence: None)
  Receive Date: 20061030
  Receipt Date: 20060105
  Transmission Date: 20070319
  Serious: No
  Sender: FDA-Public Use
  Company Number: US-GLAXOSMITHKLINE-A0587937A

PATIENT
  Age: 70 Year
  Sex: Male

DRUGS (6)
  1. ADVAIR HFA [Suspect]
     Indication: CHRONIC OBSTRUCTIVE PULMONARY DISEASE
     Dosage: 1PUFF TWICE PER DAY
     Route: 055
  2. PREDNISONE TAB [Concomitant]
     Indication: INFLAMMATION
     Dosage: 10MG PER DAY
     Route: 048
     Dates: start: 20020607
  3. LISINOPRIL [Concomitant]
     Indication: BLOOD PRESSURE
     Dosage: 20MG PER DAY
     Route: 048
     Dates: start: 20051111
  4. ALPRAZOLAM [Concomitant]
     Indication: ANXIETY
     Dosage: .5MG THREE TIMES PER DAY
     Route: 048
     Dates: start: 20020401
  5. FUROSEMIDE [Concomitant]
     Indication: FLUID RETENTION
     Dosage: 20MG PER DAY
     Route: 048
     Dates: start: 20010228
  6. POTASSIUM ACETATE [Concomitant]
     Dosage: 10MEQ PER DAY
     Route: 048

REACTIONS (2)
  - DRUG INEFFECTIVE [None]
  - PHARMACEUTICAL PRODUCT COMPLAINT [None]
